FAERS Safety Report 16760791 (Version 3)
Quarter: 2020Q2

REPORT INFORMATION
  Report Type: Report from Study
  Country: US (occurrence: US)
  Receive Date: 20190830
  Receipt Date: 20200623
  Transmission Date: 20200713
  Serious: Yes (Death)
  Sender: FDA-Public Use
  Company Number: US-PFIZER INC-2019370774

PATIENT

DRUGS (1)
  1. SUNITINIB MALATE. [Suspect]
     Active Substance: SUNITINIB MALATE
     Indication: RENAL CELL CARCINOMA
     Dosage: 50 MG, 1X/DAY (ORALLY ONCE DAILY FOR 4 WEEKS ON AND 2 WEEKS OFF IN EACH 6-WEEK CYCLE)
     Route: 048

REACTIONS (1)
  - Cardiac arrest [Fatal]
